FAERS Safety Report 11437937 (Version 1)
Quarter: 2015Q3

REPORT INFORMATION
  Report Type: Spontaneous
  Country: US (occurrence: US)
  Receive Date: 20150831
  Receipt Date: 20150831
  Transmission Date: 20151125
  Serious: No
  Sender: FDA-Public Use
  Company Number: US-LUNDBECK-DKLU2001877

PATIENT
  Sex: Male

DRUGS (2)
  1. NORTHERA [Suspect]
     Active Substance: DROXIDOPA
     Route: 048
  2. NORTHERA [Suspect]
     Active Substance: DROXIDOPA
     Indication: AUTONOMIC NEUROPATHY
     Dosage: TITRATION
     Route: 065
     Dates: start: 20150630, end: 20150708

REACTIONS (5)
  - Balance disorder [Unknown]
  - Syncope [Unknown]
  - Blood pressure systolic increased [Unknown]
  - Dizziness [Unknown]
  - Fall [Unknown]
